FAERS Safety Report 15478518 (Version 3)
Quarter: 2019Q1

REPORT INFORMATION
  Report Type: Spontaneous
  Country: JP (occurrence: JP)
  Receive Date: 20181009
  Receipt Date: 20190319
  Transmission Date: 20190417
  Serious: Yes (Other)
  Sender: FDA-Public Use
  Company Number: JP-TEVA-201712_00001034

PATIENT
  Age: 62 Year
  Sex: Female

DRUGS (7)
  1. TAKEPRON CAPSULES 15 [Suspect]
     Active Substance: LANSOPRAZOLE
     Indication: PRODUCT USED FOR UNKNOWN INDICATION
     Dosage: 15 MILLIGRAM DAILY;
     Route: 048
     Dates: start: 200704, end: 20171211
  2. BENET [Concomitant]
     Active Substance: RISEDRONATE SODIUM
     Dosage: 17.5 MILLIGRAM DAILY;
     Route: 048
     Dates: start: 200704
  3. CICLOSPORIN [Concomitant]
     Active Substance: CYCLOSPORINE
     Dosage: 150 MILLIGRAM DAILY;
     Route: 048
     Dates: start: 200704
  4. SULFAMETHOXAZOLE/TRIMETHOPRIM [Concomitant]
     Active Substance: SULFAMETHOXAZOLE\TRIMETHOPRIM
     Dosage: 1 DOSAGE FORMS DAILY;
     Route: 048
     Dates: start: 200704
  5. BLOPRESS TABLETS 2 [Suspect]
     Active Substance: CANDESARTAN CILEXETIL
     Indication: HYPERTENSION
     Route: 048
     Dates: start: 200704
  6. THYRADIN S [Concomitant]
     Active Substance: LEVOTHYROXINE SODIUM
     Dosage: 75 MICROGRAM DAILY;
     Route: 048
     Dates: start: 200704
  7. PREDONINE [Concomitant]
     Active Substance: PREDNISOLONE
     Dosage: 7.5 MILLIGRAM DAILY;
     Route: 048
     Dates: start: 200704

REACTIONS (2)
  - Colitis microscopic [Recovered/Resolved]
  - Protein-losing gastroenteropathy [Recovered/Resolved]

NARRATIVE: CASE EVENT DATE: 20171121
